FAERS Safety Report 20684608 (Version 2)
Quarter: 2023Q1

REPORT INFORMATION
  Report Type: Spontaneous
  Country: US (occurrence: US)
  Receive Date: 20220407
  Receipt Date: 20230309
  Transmission Date: 20230418
  Serious: No
  Sender: FDA-Public Use
  Company Number: US-PFIZER INC-202101795583

PATIENT
  Age: 71 Year
  Sex: Female
  Weight: 77.11 kg

DRUGS (2)
  1. IBRANCE [Suspect]
     Active Substance: PALBOCICLIB
     Indication: Breast cancer female
     Dosage: 125 MG, CYCLIC (ONE TABLET BY MOUTH FOR 21 DAYS, THEN OFF FOR SEVEN DAYS)
     Route: 048
  2. FASLODEX [Concomitant]
     Active Substance: FULVESTRANT
     Dosage: UNK, MONTHLY (STILL GETTING THE FASLODEX INJECTIONS ONCE A MONTH)
     Route: 042

REACTIONS (2)
  - Migraine [Unknown]
  - Insomnia [Unknown]

NARRATIVE: CASE EVENT DATE: 20211118
